FAERS Safety Report 4969050-0 (Version None)
Quarter: 2006Q2

REPORT INFORMATION
  Report Type: 
  Country: None (occurrence: None)
  Receive Date: 20060411
  Receipt Date: 20060322
  Transmission Date: 20061013
  Serious: Yes (Hospitalization, Other)
  Sender: FDA-Public Use
  Company Number: JP-MERCK-0603USA04231

PATIENT
  Age: 61 Year
  Sex: Female

DRUGS (5)
  1. PEPCID RPD [Suspect]
     Indication: ULCER
     Route: 048
     Dates: start: 20030312, end: 20030424
  2. MOVER [Suspect]
     Indication: RHEUMATOID ARTHRITIS
     Route: 048
     Dates: start: 20030312, end: 20030423
  3. AZULFIDINE EN-TABS [Suspect]
     Indication: RHEUMATOID ARTHRITIS
     Route: 048
     Dates: start: 20030312, end: 20030423
  4. LORCAM [Concomitant]
     Indication: RHEUMATOID ARTHRITIS
     Route: 048
     Dates: start: 20030312, end: 20030427
  5. APLACE [Concomitant]
     Indication: ULCER
     Route: 048
     Dates: start: 20030312, end: 20030423

REACTIONS (7)
  - HEPATITIS INFECTIOUS [None]
  - HERPES VIRUS INFECTION [None]
  - LEUKOPENIA [None]
  - NEUTROPHIL COUNT DECREASED [None]
  - RESPIRATORY ARREST [None]
  - SEPSIS [None]
  - SEPTIC SHOCK [None]
